FAERS Safety Report 18765509 (Version 4)
Quarter: 2021Q4

REPORT INFORMATION
  Report Type: Spontaneous
  Country: US (occurrence: US)
  Receive Date: 20210121
  Receipt Date: 20211001
  Transmission Date: 20220303
  Serious: No
  Sender: FDA-Public Use
  Company Number: US-ELI_LILLY_AND_COMPANY-US202101008545

PATIENT
  Age: 78 Year
  Sex: Female

DRUGS (1)
  1. OLUMIANT [Suspect]
     Active Substance: BARICITINIB
     Indication: Product used for unknown indication
     Dosage: 2 MG, DAILY
     Route: 048
     Dates: start: 20201106

REACTIONS (3)
  - Neuropathy peripheral [Unknown]
  - Renal function test abnormal [Unknown]
  - Constipation [Unknown]

NARRATIVE: CASE EVENT DATE: 20210118
